FAERS Safety Report 6538166-X (Version None)
Quarter: 2010Q1

REPORT INFORMATION
  Report Type: 
  Country: None (occurrence: None)
  Receive Date: 20100112
  Receipt Date: 20100112
  Transmission Date: 20100710
  Serious: Yes (Hospitalization)
  Sender: FDA-Public Use
  Company Number: None

PATIENT
  Sex: Female
  Weight: 86.6 kg

DRUGS (4)
  1. BUSULFAN [Suspect]
     Dosage: 800 MG
     Dates: end: 20090918
  2. CYTARABINE [Suspect]
     Dosage: 32.8 G
     Dates: end: 20090726
  3. ETOPOSIDE [Suspect]
     Dosage: 6300 MG
     Dates: end: 20090919
  4. G-CSF (FILGRASTIM, AMGEN) [Suspect]
     Dosage: 15060 MCG
     Dates: end: 20091001

REACTIONS (1)
  - INTERSTITIAL LUNG DISEASE [None]
